FAERS Safety Report 7463900-4 (Version None)
Quarter: 2011Q2

REPORT INFORMATION
  Report Type: 
  Country: None (occurrence: None)
  Receive Date: 20110506
  Receipt Date: 20110427
  Transmission Date: 20111010
  Serious: Yes (Hospitalization, Other)
  Sender: FDA-Public Use
  Company Number: US-ABBOTT-11P-163-0715417-01

PATIENT
  Sex: Male

DRUGS (47)
  1. HUMIRA [Suspect]
     Route: 058
     Dates: start: 20101206
  2. CIPRO [Concomitant]
     Dates: start: 20100410, end: 20100415
  3. VITAMIN D [Concomitant]
     Indication: VITAMIN SUPPLEMENTATION
     Dates: start: 20081228
  4. ACIPHEX [Concomitant]
     Indication: ABDOMINAL PAIN
     Dates: start: 20100401, end: 20100430
  5. FLAGYL [Concomitant]
     Indication: CROHN'S DISEASE
     Dates: start: 20100218, end: 20100303
  6. PREDNISONE [Concomitant]
     Dates: start: 20100429, end: 20100505
  7. ACETAMINOPHEN [Concomitant]
     Indication: NASOPHARYNGITIS
  8. ALBUTEROL [Concomitant]
     Indication: ASTHMA
     Dates: start: 19930101
  9. CIPRO [Concomitant]
     Dates: start: 20100218, end: 20100303
  10. MORPHINE [Concomitant]
     Indication: ABDOMINAL PAIN
     Dates: start: 20100410, end: 20100410
  11. CIMZIA [Concomitant]
     Indication: CROHN'S DISEASE
     Dates: start: 20100505, end: 20100505
  12. ISOVUE-370 [Concomitant]
     Indication: SCAN WITH CONTRAST
     Dosage: X1
     Dates: start: 20100410, end: 20100410
  13. IRON PREPARATIONS [Concomitant]
     Indication: ANAEMIA
     Dates: start: 20100118, end: 20100301
  14. IRON PREPARATIONS [Concomitant]
     Dates: start: 20100312
  15. FENTANYL [Concomitant]
     Dates: start: 20101105, end: 20101107
  16. ANALPRAM HC [Concomitant]
     Indication: HAEMORRHOIDS
     Dates: start: 20081110
  17. FLAGYL [Concomitant]
     Indication: SMALL INTESTINAL OBSTRUCTION
     Dates: start: 20100410, end: 20100415
  18. PREDNISONE [Concomitant]
     Dates: start: 20100422, end: 20100428
  19. HYDROCORTISONE [Concomitant]
     Indication: DERMATITIS CONTACT
     Dates: start: 20100604, end: 20100612
  20. FENTANYL [Concomitant]
     Indication: SMALL INTESTINAL OBSTRUCTION
     Dosage: X1
     Dates: start: 20101105, end: 20101105
  21. PANTOPRAZOLE [Concomitant]
     Indication: ABDOMINAL PAIN
     Dates: start: 20100901
  22. HUMIRA [Suspect]
     Indication: CROHN'S DISEASE
     Route: 058
     Dates: start: 20071227, end: 20100430
  23. HYOSCYAMINE SULFATE [Concomitant]
     Indication: ABDOMINAL PAIN
     Dosage: 1/2 - 1 TAB
     Dates: start: 20090210
  24. PROTONIX [Concomitant]
     Indication: ABDOMINAL PAIN
     Dates: start: 20100101, end: 20100301
  25. BENADRYL [Concomitant]
     Indication: SEASONAL ALLERGY
     Dates: start: 19980101
  26. CIPRO [Concomitant]
     Dates: start: 20101110
  27. STUARTNATAL 1+1 [Concomitant]
     Indication: VITAMIN SUPPLEMENTATION
     Dates: start: 20081228
  28. VITAMIN B-12 [Concomitant]
     Indication: FATIGUE
     Dates: start: 20091102
  29. METHYLPREDNISOLONE [Concomitant]
     Indication: SMALL INTESTINAL OBSTRUCTION
     Dates: start: 20100411, end: 20100415
  30. FLAGYL [Concomitant]
     Dates: start: 20101110
  31. PREDNISONE [Concomitant]
     Dates: start: 20100520, end: 20100526
  32. PREDNISONE [Concomitant]
     Dates: start: 20100603, end: 20100609
  33. FENTANYL [Concomitant]
     Indication: ABDOMINAL PAIN
     Dates: start: 20100410, end: 20100415
  34. FENTANYL [Concomitant]
     Dosage: X1
     Dates: start: 20101107, end: 20101107
  35. CIMZIA [Concomitant]
     Dosage: X1
     Dates: start: 20100519, end: 20100519
  36. ACETAMINOPHEN [Concomitant]
     Indication: HEADACHE
     Dates: start: 19950101
  37. PROCTOFOAM [Concomitant]
     Indication: HAEMORRHOIDS
     Dates: start: 20081110
  38. PREDNISONE [Concomitant]
     Dates: start: 20100513, end: 20100519
  39. OMEPRAZOLE [Concomitant]
     Indication: ABDOMINAL PAIN
     Dates: start: 20100430
  40. CIPRO [Concomitant]
     Indication: NASOPHARYNGITIS
     Dates: start: 20081110, end: 20081124
  41. CIPRO [Concomitant]
     Dates: start: 20100415, end: 20100424
  42. MORPHINE [Concomitant]
     Indication: SMALL INTESTINAL OBSTRUCTION
  43. FLAGYL [Concomitant]
     Dates: start: 20100415, end: 20100424
  44. PREDNISONE [Concomitant]
     Indication: CROHN'S DISEASE
     Dates: start: 20100415, end: 20100421
  45. PREDNISONE [Concomitant]
     Dates: start: 20100506, end: 20100512
  46. PREDNISONE [Concomitant]
     Dates: start: 20100527, end: 20100602
  47. CALCIUM GLUCONATE [Concomitant]
     Indication: HYPOCALCAEMIA
     Dates: start: 20100412, end: 20100412

REACTIONS (2)
  - CROHN'S DISEASE [None]
  - INTESTINAL STENOSIS [None]
